FAERS Safety Report 8456920 (Version 7)
Quarter: 2015Q2

REPORT INFORMATION
  Report Type: Report from Study
  Country: DE (occurrence: DE)
  Receive Date: 20120313
  Receipt Date: 20150509
  Transmission Date: 20150821
  Serious: Yes (Hospitalization)
  Sender: FDA-Public Use
  Company Number: DE-ROCHE-1037074

PATIENT
  Age: 62 Year
  Sex: Male
  Weight: 62 kg

DRUGS (11)
  1. FORMOTEROL FUMARATE [Concomitant]
     Active Substance: FORMOTEROL FUMARATE
     Indication: MALIGNANT MELANOMA
     Route: 065
     Dates: start: 200910, end: 20120130
  2. VEMURAFENIB [Suspect]
     Active Substance: VEMURAFENIB
     Indication: MALIGNANT MELANOMA
     Dosage: LAST DATE PRIOR TO SAE ON 29 JAN 2012, AND IT WAS UPDATED TO 7/FEB/2012
     Route: 048
     Dates: start: 20120125
  3. TIOTROPIUM BROMIDE [Concomitant]
     Active Substance: TIOTROPIUM BROMIDE
     Indication: MALIGNANT MELANOMA
     Route: 065
     Dates: start: 200910, end: 20120130
  4. VEMURAFENIB [Interacting]
     Active Substance: VEMURAFENIB
     Dosage: LAST DOSE PRIOR TO SAE ON 24/FEB/2012
     Route: 048
     Dates: start: 20120207
  5. THEOPHYLLIN [Interacting]
     Active Substance: THEOPHYLLINE ANHYDROUS
     Route: 065
     Dates: start: 20120131, end: 20120304
  6. BUDESONIDE. [Concomitant]
     Active Substance: BUDESONIDE
     Route: 065
     Dates: start: 20120131, end: 20120222
  7. THEOPHYLLIN [Interacting]
     Active Substance: THEOPHYLLINE ANHYDROUS
     Indication: MALIGNANT MELANOMA
     Route: 065
     Dates: start: 200910, end: 20120130
  8. BUDESONIDE. [Concomitant]
     Active Substance: BUDESONIDE
     Indication: MALIGNANT MELANOMA
     Route: 065
     Dates: start: 200910, end: 20120130
  9. TIOTROPIUM BROMIDE [Concomitant]
     Active Substance: TIOTROPIUM BROMIDE
     Route: 065
     Dates: start: 20120131, end: 20120304
  10. FORMOTEROL FUMARATE [Concomitant]
     Active Substance: FORMOTEROL FUMARATE
     Route: 065
     Dates: start: 20120131, end: 20120304
  11. PULMICORT TURBUHALER [Concomitant]
     Active Substance: BUDESONIDE
     Route: 065
     Dates: start: 200910, end: 20120130

REACTIONS (1)
  - Chronic obstructive pulmonary disease [Recovered/Resolved]

NARRATIVE: CASE EVENT DATE: 20120129
